FAERS Safety Report 8151316-7 (Version None)
Quarter: 2012Q1

REPORT INFORMATION
  Report Type: 
  Country: None (occurrence: None)
  Receive Date: 20120220
  Receipt Date: 20120209
  Transmission Date: 20120608
  Serious: Yes (Hospitalization)
  Sender: FDA-Public Use
  Company Number: BR-ASTRAZENECA-2011SE39535

PATIENT
  Age: 78 Year
  Sex: Female
  Weight: 69 kg

DRUGS (11)
  1. METFORMIN HCL [Concomitant]
     Indication: DIABETES MELLITUS
     Dosage: TWO TIMES A DAY
     Route: 048
     Dates: start: 20060101
  2. SEROQUEL [Suspect]
     Indication: BIPOLAR DISORDER
     Route: 048
     Dates: start: 20100101
  3. NEUTROFER [Concomitant]
  4. LAMICTAL [Concomitant]
  5. SEROQUEL [Suspect]
     Indication: DEPRESSION
     Route: 048
     Dates: start: 20100101
  6. NEXIUM [Concomitant]
     Route: 048
  7. MOTILIUM [Concomitant]
  8. LOSARTAN POTASSIUM [Concomitant]
  9. METAMUCIL-2 [Concomitant]
  10. LAMICTAL [Concomitant]
     Dates: start: 20110501
  11. CITONEURIN [Concomitant]

REACTIONS (4)
  - HAEMATOCHEZIA [None]
  - HAEMATEMESIS [None]
  - ANAEMIA [None]
  - ULCER [None]
